FAERS Safety Report 7380749-1 (Version None)
Quarter: 2011Q1

REPORT INFORMATION
  Report Type: 
  Country: None (occurrence: None)
  Receive Date: 20110329
  Receipt Date: 20110318
  Transmission Date: 20110831
  Serious: Yes (Hospitalization, Other)
  Sender: FDA-Public Use
  Company Number: A0812653A

PATIENT
  Age: 22 Year
  Sex: Male
  Weight: 64.1 kg

DRUGS (20)
  1. PHOSLO [Concomitant]
     Dosage: 667MG THREE TIMES PER DAY
  2. URSO 250 [Concomitant]
     Dosage: 250MG TWICE PER DAY
     Route: 048
  3. VITAMIN D [Concomitant]
     Dosage: 50000IU WEEKLY
  4. PROCRIT [Concomitant]
     Dosage: 10000U THREE TIMES PER WEEK
     Route: 058
  5. OSCAL [Concomitant]
     Dosage: 500MG THREE TIMES PER DAY
     Route: 048
  6. NEXIUM [Concomitant]
     Dosage: 40MG TWICE PER DAY
     Route: 048
  7. TRAZODONE [Concomitant]
     Dosage: 25MG AS REQUIRED
     Route: 048
  8. WARFARIN SODIUM [Concomitant]
     Indication: DEEP VEIN THROMBOSIS
  9. PROMACTA [Suspect]
     Indication: IDIOPATHIC THROMBOCYTOPENIC PURPURA
     Dosage: 25MG PER DAY
     Route: 048
     Dates: start: 20090929, end: 20091230
  10. BENADRYL [Concomitant]
     Dosage: 25MG AS REQUIRED
     Route: 048
  11. UNKNOWN [Concomitant]
     Dosage: 30MG PER DAY
     Route: 048
  12. UNKNOWN [Concomitant]
     Route: 048
  13. PAMELOR [Concomitant]
     Dosage: 25MG AT NIGHT
     Route: 048
  14. PREDNISONE [Concomitant]
     Route: 048
  15. NORTRIPTYLINE [Concomitant]
     Dosage: 25MG AT NIGHT
     Route: 048
  16. SODIUM BICARBONATE [Concomitant]
     Dosage: 650MG THREE TIMES PER DAY
     Route: 048
  17. LACTULOSE [Concomitant]
     Dosage: 10G THREE TIMES PER DAY
     Route: 048
  18. PROPRANOLOL [Concomitant]
     Dosage: 20MG TWICE PER DAY
     Route: 048
  19. RIFAXIMIN [Concomitant]
     Dosage: 400MG THREE TIMES PER DAY
     Route: 048
  20. LORTAB [Concomitant]
     Dosage: 7.5MG TWICE PER DAY
     Route: 048

REACTIONS (11)
  - COAGULOPATHY [None]
  - PANCYTOPENIA [None]
  - RENAL TRANSPLANT [None]
  - VENOGRAM [None]
  - HEPATITIS ACUTE [None]
  - DEEP VEIN THROMBOSIS [None]
  - LIVER TRANSPLANT [None]
  - SINUSITIS [None]
  - CHRONIC HEPATITIS [None]
  - HEPATIC FAILURE [None]
  - CYTOMEGALOVIRUS VIRAEMIA [None]
